FAERS Safety Report 4483861-X (Version None)
Quarter: 2004Q4

REPORT INFORMATION
  Report Type: 
  Country: None (occurrence: None)
  Receive Date: 20041020
  Receipt Date: 20041005
  Transmission Date: 20050328
  Serious: Yes (Death)
  Sender: FDA-Public Use
  Company Number: K200401525

PATIENT
  Sex: 0

DRUGS (3)
  1. QUIBRON [Suspect]
     Dosage: ORAL
     Route: 048
  2. ACETAMINOPHEN W/HYDROCODONE (PARACETAMOL, HYDROCODONE) [Suspect]
     Dosage: ORAL
     Route: 048
  3. MIRTAZAPINE [Suspect]
     Dosage: ORAL
     Route: 048

REACTIONS (2)
  - COMPLETED SUICIDE [None]
  - MULTIPLE DRUG OVERDOSE INTENTIONAL [None]
